FAERS Safety Report 11821206 (Version 2)
Quarter: 2015Q4

REPORT INFORMATION
  Report Type: Spontaneous
  Country: NL (occurrence: NL)
  Receive Date: 20151210
  Receipt Date: 20151221
  Transmission Date: 20160305
  Serious: Yes (Hospitalization)
  Sender: FDA-Public Use
  Company Number: NL-TOLMAR, INC.-2015NL010931

PATIENT
  Sex: Male

DRUGS (2)
  1. ELIGARD [Suspect]
     Active Substance: LEUPROLIDE ACETATE
     Indication: PROSTATE CANCER
     Dosage: 45 MG, ONE PER 6 MONTHS
     Route: 058
     Dates: start: 20150612
  2. ELIGARD [Suspect]
     Active Substance: LEUPROLIDE ACETATE
     Dosage: 45 MG, ONE PER 6 MONTHS
     Route: 058
     Dates: start: 20151202

REACTIONS (2)
  - Prostatic specific antigen increased [Unknown]
  - Pain [Unknown]
